FAERS Safety Report 9277494 (Version 1)
Quarter: 2013Q2

REPORT INFORMATION
  Report Type: Spontaneous
  Country: US (occurrence: US)
  Receive Date: 20130508
  Receipt Date: 20130508
  Transmission Date: 20140414
  Serious: No
  Sender: FDA-Public Use
  Company Number: US-MYLANLABS-2013S1002159

PATIENT
  Age: 83 Year
  Sex: Male
  Weight: 74.84 kg

DRUGS (5)
  1. FLUVASTATIN [Suspect]
     Indication: BLOOD CHOLESTEROL
     Route: 048
     Dates: start: 20130109
  2. DOXAZOSIN [Concomitant]
     Indication: PROSTATIC DISORDER
     Route: 048
  3. ATENOLOL [Concomitant]
     Route: 048
     Dates: start: 2012
  4. VITAMIN [Concomitant]
  5. RANITIDINE [Concomitant]
     Indication: ANTACID THERAPY
     Dosage: 1 TABLET AFTER SUPPER

REACTIONS (2)
  - Fatigue [Not Recovered/Not Resolved]
  - Listless [Not Recovered/Not Resolved]
